FAERS Safety Report 6044966-5 (Version None)
Quarter: 2009Q1

REPORT INFORMATION
  Report Type: 
  Country: None (occurrence: None)
  Receive Date: 20090116
  Receipt Date: 20090116
  Transmission Date: 20090719
  Serious: Yes (Other)
  Sender: FDA-Public Use
  Company Number: None

PATIENT
  Sex: Female
  Weight: 21.7727 kg

DRUGS (2)
  1. SINGULAIR [Suspect]
     Indication: MULTIPLE ALLERGIES
     Dosage: 4MG AND 5MG -STARTED ON 4MG- ONCE DAILY PO
     Route: 048
     Dates: start: 20040316, end: 20081228
  2. SINGULAIR [Suspect]
     Indication: SINUS DISORDER
     Dosage: 4MG AND 5MG -STARTED ON 4MG- ONCE DAILY PO
     Route: 048
     Dates: start: 20040316, end: 20081228

REACTIONS (15)
  - ABDOMINAL PAIN [None]
  - ABDOMINAL PAIN UPPER [None]
  - AFFECTIVE DISORDER [None]
  - AGGRESSION [None]
  - ANGER [None]
  - ANXIETY [None]
  - CRYING [None]
  - DIARRHOEA [None]
  - FATIGUE [None]
  - HEADACHE [None]
  - MOOD SWINGS [None]
  - NIGHTMARE [None]
  - PAIN IN EXTREMITY [None]
  - SENSORY DISTURBANCE [None]
  - VOMITING [None]
